FAERS Safety Report 5374847-1 (Version None)
Quarter: 2007Q2

REPORT INFORMATION
  Report Type: 
  Country: None (occurrence: None)
  Receive Date: 20070627
  Receipt Date: 20070627
  Transmission Date: 20071010
  Serious: No
  Sender: FDA-Public Use
  Company Number: None

PATIENT
  Age: 33 Year
  Sex: Female
  Weight: 55.0667 kg

DRUGS (8)
  1. MAGNEVIST [Suspect]
     Indication: NUCLEAR MAGNETIC RESONANCE IMAGING
     Dosage: 24 ML IV X 1 DOSE
     Route: 042
  2. WELLBUTRIN SR [Concomitant]
  3. TETRACYCLINE [Concomitant]
  4. SINGULAIR [Concomitant]
  5. CLARITIN [Concomitant]
  6. MOV [Concomitant]
  7. CALCIUM/VITAMIN D [Concomitant]
  8. ACIDOPHILUS [Concomitant]

REACTIONS (4)
  - DIZZINESS [None]
  - INFUSION RELATED REACTION [None]
  - RESPIRATORY RATE INCREASED [None]
  - URTICARIA [None]
